FAERS Safety Report 7008440-1 (Version None)
Quarter: 2010Q3

REPORT INFORMATION
  Report Type: 
  Country: None (occurrence: None)
  Receive Date: 20100922
  Receipt Date: 20100915
  Transmission Date: 20110219
  Serious: Yes (Hospitalization)
  Sender: FDA-Public Use
  Company Number: US-US-EMD SERONO, INC.-7017802

PATIENT
  Sex: Female
  Weight: 86 kg

DRUGS (1)
  1. REBIF [Suspect]
     Indication: MULTIPLE SCLEROSIS
     Route: 058
     Dates: start: 20050103

REACTIONS (6)
  - CELLULITIS [None]
  - CONTUSION [None]
  - FACE INJURY [None]
  - FALL [None]
  - FATIGUE [None]
  - LIMB INJURY [None]
